FAERS Safety Report 5361869-X (Version None)
Quarter: 2007Q2

REPORT INFORMATION
  Report Type: 
  Country: None (occurrence: None)
  Receive Date: 20070615
  Receipt Date: 20070606
  Transmission Date: 20071010
  Serious: Yes (Death)
  Sender: FDA-Public Use
  Company Number: T200700662

PATIENT

DRUGS (1)
  1. MD-GASTROVIEW [Suspect]

REACTIONS (1)
  - DEATH [None]
